FAERS Safety Report 12886077 (Version 1)
Quarter: 2016Q4

REPORT INFORMATION
  Report Type: Spontaneous
  Country: US (occurrence: US)
  Receive Date: 20161026
  Receipt Date: 20161026
  Transmission Date: 20170207
  Serious: No
  Sender: FDA-Public Use
  Company Number: US-TARO-2016TAR00597

PATIENT
  Sex: Female

DRUGS (4)
  1. ZINC OXIDE. [Suspect]
     Active Substance: ZINC OXIDE
     Indication: TRACHEAL HAEMORRHAGE
     Dosage: UNK
     Route: 061
     Dates: start: 201606
  2. NEOSPORIN [Suspect]
     Active Substance: BACITRACIN ZINC\NEOMYCIN SULFATE\POLYMYXIN B SULFATE
     Indication: TRACHEAL HAEMORRHAGE
     Dosage: UNK
     Route: 061
     Dates: start: 201606
  3. MUPIROCIN OINTMENT USP 2% [Suspect]
     Active Substance: MUPIROCIN
     Indication: TRACHEAL HAEMORRHAGE
     Dosage: UNK
     Route: 061
     Dates: start: 201606
  4. OXYGEN. [Concomitant]
     Active Substance: OXYGEN

REACTIONS (1)
  - Condition aggravated [Unknown]

NARRATIVE: CASE EVENT DATE: 201606
